FAERS Safety Report 25344344 (Version 6)
Quarter: 2025Q4

REPORT INFORMATION
  Report Type: Report from Study
  Country: EU (occurrence: EU)
  Receive Date: 20250521
  Receipt Date: 20251212
  Transmission Date: 20260118
  Serious: Yes (Hospitalization)
  Sender: ABBVIE
  Company Number: EU-ABBVIE-5722034

PATIENT
  Age: 75 Year
  Sex: Male

DRUGS (2)
  1. FOSCARBIDOPA\FOSLEVODOPA [Suspect]
     Active Substance: FOSCARBIDOPA\FOSLEVODOPA
     Indication: Parkinson^s disease
     Dosage: DOSAGE: SD: 0,70 ML; CRL: 0,24 ML/H; CR: 0,38 ML/H; CRH: 0,40 ML/H; ED: 0,30 ML
     Route: 058
     Dates: start: 20240129
  2. FOSCARBIDOPA\FOSLEVODOPA [Suspect]
     Active Substance: FOSCARBIDOPA\FOSLEVODOPA
     Dosage: DOSAGE: CRN: 0.24ML/H, CR: 0.34ML/H, CRH: 0.40ML/H
     Route: 058

REACTIONS (11)
  - General physical health deterioration [Not Recovered/Not Resolved]
  - Cataract [Unknown]
  - Infusion site abscess [Not Recovered/Not Resolved]
  - Haematological infection [Not Recovered/Not Resolved]
  - Urosepsis [Unknown]
  - Movement disorder [Not Recovered/Not Resolved]
  - Cholelithiasis [Recovering/Resolving]
  - Nephrolithiasis [Recovered/Resolved]
  - Malaise [Not Recovered/Not Resolved]
  - Parkinson^s disease [Recovering/Resolving]
  - Tremor [Not Recovered/Not Resolved]

NARRATIVE: CASE EVENT DATE: 20240101
